FAERS Safety Report 23657598 (Version 2)
Quarter: 2024Q2

REPORT INFORMATION
  Report Type: Spontaneous
  Country: DE (occurrence: DE)
  Receive Date: 20240321
  Receipt Date: 20240502
  Transmission Date: 20240716
  Serious: Yes (Other)
  Sender: FDA-Public Use
  Company Number: DE-Karo Pharma-2154582

PATIENT
  Age: 26 Year
  Sex: Female
  Weight: 47 kg

DRUGS (10)
  1. LAMISIL [Suspect]
     Active Substance: TERBINAFINE HYDROCHLORIDE
     Indication: Product used for unknown indication
  2. VORICONAZOLE [Suspect]
     Active Substance: VORICONAZOLE
  3. HYDROXYCHLOROQUINE [Concomitant]
     Active Substance: HYDROXYCHLOROQUINE
  4. HUMIRA [Suspect]
     Active Substance: ADALIMUMAB
  5. HYDRALAZINE HYDROCHLORIDE [Suspect]
     Active Substance: HYDRALAZINE HYDROCHLORIDE
  6. MINOCYCLINE HYDROCHLORIDE [Suspect]
     Active Substance: MINOCYCLINE HYDROCHLORIDE
  7. PROCAINAMIDE HYDROCHLORIDE [Suspect]
     Active Substance: PROCAINAMIDE HYDROCHLORIDE
  8. METHYLDOPA [Suspect]
     Active Substance: METHYLDOPA
  9. CHLORPROMAZINE HYDROCHLORIDE [Suspect]
     Active Substance: CHLORPROMAZINE HYDROCHLORIDE
  10. QUINIDINE SULFATE [Suspect]
     Active Substance: QUINIDINE SULFATE

REACTIONS (32)
  - Antiphospholipid syndrome [Unknown]
  - Venous thrombosis limb [Unknown]
  - Colitis ulcerative [Recovering/Resolving]
  - Infection [Unknown]
  - Respiratory failure [Unknown]
  - Pleural effusion [Unknown]
  - Ascites [Unknown]
  - Ovarian failure [Unknown]
  - Myalgia [Unknown]
  - Pouchitis [Recovering/Resolving]
  - Arthritis [Unknown]
  - Somatic symptom disorder [Unknown]
  - Peritonitis [Unknown]
  - Maternal exposure during pregnancy [Unknown]
  - Intervertebral disc protrusion [Unknown]
  - Gliosis [Unknown]
  - Depression [Unknown]
  - Cardiac tamponade [Unknown]
  - Polyserositis [Unknown]
  - Photosensitivity reaction [Unknown]
  - Fatigue [Unknown]
  - Erythema [Unknown]
  - Frequent bowel movements [Not Recovered/Not Resolved]
  - Cognitive disorder [Unknown]
  - Premature menopause [Unknown]
  - Systemic lupus erythematosus [Recovering/Resolving]
  - Atrial fibrillation [Unknown]
  - Arthralgia [Unknown]
  - Lupus-like syndrome [Unknown]
  - Pain [Unknown]
  - Live birth [Unknown]
  - Normal newborn [Unknown]
